FAERS Safety Report 8085471-4 (Version None)
Quarter: 2012Q1

REPORT INFORMATION
  Report Type: 
  Country: None (occurrence: None)
  Receive Date: 20120128
  Receipt Date: 20110519
  Transmission Date: 20120608
  Serious: No
  Sender: FDA-Public Use
  Company Number: US-ABBOTT-11P-163-0708365-00

PATIENT
  Sex: Female

DRUGS (11)
  1. NAPROSYN [Concomitant]
     Indication: HORMONE LEVEL ABNORMAL
     Dosage: DAILY
  2. PAXIL [Concomitant]
     Indication: DEPRESSION
  3. HUMIRA [Suspect]
     Indication: PSORIASIS
     Dosage: DAY 1
     Route: 058
     Dates: start: 20110223
  4. NIACIN [Concomitant]
     Indication: PRODUCT USED FOR UNKNOWN INDICATION
  5. ISOPROFEN [Concomitant]
     Indication: PSORIASIS
  6. FISH OIL [Concomitant]
     Indication: MEDICAL DIET
  7. IBUPROFEN [Concomitant]
     Indication: PSORIASIS
  8. ASPIRIN [Concomitant]
     Indication: HORMONE THERAPY
     Dosage: 1 DAILY IN CONJUNCTION WITH NAPROSYN 1,000MG
  9. BENICAR [Concomitant]
     Indication: HYPERTENSION
     Dosage: 40/12.5MG 1 TABLET DAILY
  10. HUMIRA [Suspect]
     Dates: start: 20110303
  11. GARLIC [Concomitant]
     Indication: MEDICAL DIET

REACTIONS (3)
  - FLUSHING [None]
  - INJECTION SITE PAIN [None]
  - PSORIASIS [None]
